FAERS Safety Report 5360157-5 (Version None)
Quarter: 2007Q2

REPORT INFORMATION
  Report Type: 
  Country: None (occurrence: None)
  Receive Date: 20070618
  Receipt Date: 20070604
  Transmission Date: 20071010
  Serious: Yes (Hospitalization)
  Sender: FDA-Public Use
  Company Number: PHFR2007GB01901

PATIENT
  Age: 2 Year

DRUGS (2)
  1. TEGRETOL [Suspect]
  2. AMOXICILLIN [Suspect]
     Indication: EAR INFECTION

REACTIONS (4)
  - EAR INFECTION [None]
  - OEDEMA MOUTH [None]
  - ORAL MUCOSAL BLISTERING [None]
  - STEVENS-JOHNSON SYNDROME [None]
